FAERS Safety Report 17333390 (Version 2)
Quarter: 2021Q3

REPORT INFORMATION
  Report Type: Spontaneous
  Country: SE (occurrence: SE)
  Receive Date: 20200128
  Receipt Date: 20210816
  Transmission Date: 20211014
  Serious: Yes (Hospitalization)
  Sender: FDA-Public Use
  Company Number: SE-MYLANLABS-2020M1010357

PATIENT
  Age: 24 Year
  Sex: Male

DRUGS (3)
  1. LERGIGAN (PROMETHAZINE) [Suspect]
     Active Substance: PROMETHAZINE HYDROCHLORIDE
     Indication: PRODUCT USED FOR UNKNOWN INDICATION
     Dosage: UNK (50 MG LERGIGAN)
     Route: 048
     Dates: start: 20190722, end: 20190722
  2. OXYCODONE [Suspect]
     Active Substance: OXYCODONE
     Indication: PRODUCT USED FOR UNKNOWN INDICATION
     Dosage: UNK
     Route: 048
     Dates: start: 20190722, end: 20190722
  3. ATARAX [Suspect]
     Active Substance: HYDROXYZINE HYDROCHLORIDE
     Indication: PRODUCT USED FOR UNKNOWN INDICATION
     Dosage: 475 MILLIGRAM
     Route: 048
     Dates: start: 20190722, end: 20190722

REACTIONS (6)
  - Anxiety [Unknown]
  - Depressed level of consciousness [Unknown]
  - Sinus tachycardia [Unknown]
  - Intentional overdose [Unknown]
  - Intentional self-injury [Unknown]
  - Pupillary reflex impaired [Unknown]

NARRATIVE: CASE EVENT DATE: 20190722
